FAERS Safety Report 20307774 (Version 1)
Quarter: 2022Q1

REPORT INFORMATION
  Report Type: Spontaneous
  Country: US (occurrence: US)
  Receive Date: 20220107
  Receipt Date: 20220107
  Transmission Date: 20220423
  Serious: No
  Sender: FDA-Public Use
  Company Number: US-ALLERGAN-2138875US

PATIENT
  Sex: Male

DRUGS (2)
  1. QULIPTA [Suspect]
     Active Substance: ATOGEPANT
     Indication: Nervous system disorder
     Dosage: 60 MG, QD
     Dates: start: 20211105
  2. QULIPTA [Suspect]
     Active Substance: ATOGEPANT
     Indication: Headache

REACTIONS (3)
  - Off label use [Unknown]
  - Product dose omission in error [Unknown]
  - Drug ineffective [Unknown]
